FAERS Safety Report 8314649-7 (Version None)
Quarter: 2012Q2

REPORT INFORMATION
  Report Type: 
  Country: None (occurrence: None)
  Receive Date: 20120426
  Receipt Date: 20080902
  Transmission Date: 20120825
  Serious: Yes (Hospitalization, Other)
  Sender: FDA-Public Use
  Company Number: US-TEVA-US024525

PATIENT
  Sex: Male

DRUGS (3)
  1. PROVIGIL [Suspect]
     Indication: SLEEP APNOEA SYNDROME
     Dosage: 400 MILLIGRAM;
     Route: 048
     Dates: start: 19980101, end: 20080101
  2. PROVIGIL [Suspect]
     Dosage: 800 MILLIGRAM;
     Route: 048
     Dates: start: 20080101, end: 20080101
  3. PROVIGIL [Suspect]
     Dosage: 400 MILLIGRAM;
     Route: 048
     Dates: start: 20080101

REACTIONS (3)
  - DRUG TOLERANCE [None]
  - THERAPEUTIC RESPONSE UNEXPECTED [None]
  - DEPRESSION [None]
